FAERS Safety Report 8982897 (Version 1)
Quarter: 2012Q4

REPORT INFORMATION
  Report Type: Report from Study
  Country: ES (occurrence: ES)
  Receive Date: 20121221
  Receipt Date: 20121221
  Transmission Date: 20130627
  Serious: Yes (Death, Hospitalization)
  Sender: FDA-Public Use
  Company Number: ES-BAXTER-2012BAX027236

PATIENT
  Age: 65 Year
  Sex: Male

DRUGS (4)
  1. GENOXAL [Suspect]
     Indication: CHRONIC LYMPHOCYTIC LEUKEMIA
     Route: 065
     Dates: start: 20061031
  2. RITUXIMAB [Suspect]
     Indication: CHRONIC LYMPHOCYTIC LEUKEMIA
     Route: 042
     Dates: start: 20061031, end: 20090618
  3. FLUDARABINE [Suspect]
     Indication: CHRONIC LYMPHOCYTIC LEUKEMIA
     Route: 065
     Dates: start: 20061031
  4. MITOXANTRONE [Suspect]
     Indication: CHRONIC LYMPHOCYTIC LEUKEMIA
     Route: 065
     Dates: start: 20061031

REACTIONS (16)
  - Respiratory tract infection [Fatal]
  - Neurological symptom [Unknown]
  - Dizziness [None]
  - Somnolence [None]
  - Hypersomnia [None]
  - Demyelination [None]
  - Decreased appetite [None]
  - Blood pressure fluctuation [None]
  - Bradyphrenia [None]
  - Hiccups [None]
  - Toxic encephalopathy [None]
  - Oligodendroglioma [None]
  - Neurological decompensation [None]
  - Haemoglobin decreased [None]
  - Aspartate aminotransferase increased [None]
  - Blood creatinine increased [None]
